FAERS Safety Report 8102458-3 (Version None)
Quarter: 2012Q1

REPORT INFORMATION
  Report Type: 
  Country: None (occurrence: None)
  Receive Date: 20120201
  Receipt Date: 20120123
  Transmission Date: 20120608
  Serious: Yes (Hospitalization, Other)
  Sender: FDA-Public Use
  Company Number: US-BAYER-2011-045421

PATIENT
  Age: 38 Year
  Sex: Female
  Weight: 111 kg

DRUGS (22)
  1. YAZ [Suspect]
     Indication: ACNE
     Dosage: UNK
     Dates: start: 20090601, end: 20100202
  2. CLONAZEPAM [Concomitant]
     Indication: ANXIETY
  3. CYMBALTA [Concomitant]
     Indication: GASTROOESOPHAGEAL REFLUX DISEASE
  4. SPIRONOLACTONE [Concomitant]
  5. ABILIFY [Concomitant]
     Indication: BIPOLAR DISORDER
  6. LAMOTRIGINE [Concomitant]
  7. FOLIC ACID [Concomitant]
  8. METHOTREXATE [Concomitant]
     Indication: RHEUMATOID ARTHRITIS
  9. FUROSEMIDE [Concomitant]
     Indication: PROPHYLAXIS
  10. OXYCONTIN [Concomitant]
     Indication: PAIN
  11. GABAPENTIN [Concomitant]
     Indication: LAXATIVE SUPPORTIVE CARE
  12. PROAIR HFA [Concomitant]
  13. LEVOTHYROXINE SODIUM [Concomitant]
  14. CYANOCOBALAMIN [Concomitant]
     Indication: PROPHYLAXIS
  15. METOPROLOL TARTRATE [Concomitant]
     Indication: CARDIAC DISORDER
     Dosage: UNK
     Dates: start: 19990101
  16. VITAMIN D [Concomitant]
     Indication: DEPRESSION
  17. HYDROXYZINE HCL [Concomitant]
     Indication: MULTIPLE ALLERGIES
  18. MIRTAZAPINE [Concomitant]
     Indication: DEPRESSION
  19. YAZ [Suspect]
     Indication: PREMENSTRUAL SYNDROME
  20. METOPROLOL TARTRATE [Concomitant]
     Dosage: UNK
     Dates: start: 20010101
  21. NSAID'S [Concomitant]
  22. ASPIRIN [Concomitant]
     Indication: CARDIAC DISORDER

REACTIONS (9)
  - MYOCARDIAL INFARCTION [None]
  - PULMONARY EMBOLISM [None]
  - GALLBLADDER DISORDER [None]
  - CEREBROVASCULAR ACCIDENT [None]
  - INJURY [None]
  - THROMBOSIS [None]
  - DEEP VEIN THROMBOSIS [None]
  - ILIAC ARTERY THROMBOSIS [None]
  - PAIN [None]
